FAERS Safety Report 8333607-X (Version None)
Quarter: 2012Q2

REPORT INFORMATION
  Report Type: 
  Country: None (occurrence: None)
  Receive Date: 20120503
  Receipt Date: 20120424
  Transmission Date: 20120825
  Serious: Yes (Hospitalization)
  Sender: FDA-Public Use
  Company Number: AT-SANOFI-AVENTIS-2012SA028466

PATIENT
  Age: 61 Year
  Sex: Male
  Weight: 58 kg

DRUGS (13)
  1. KALIORAL [Concomitant]
     Dosage: DOSE:1 AMP
     Dates: start: 20110805
  2. KYTRIL [Concomitant]
     Dates: start: 20110721
  3. LASIX [Concomitant]
     Dates: start: 20111108
  4. AVASTIN [Suspect]
     Indication: METASTATIC GASTRIC CANCER
     Dosage: 2-WEEKLY DOSE:5 MILLIGRAM(S)/MILLILITRE
     Route: 042
     Dates: start: 20110721, end: 20111108
  5. BISOPROLOL FUMARATE [Concomitant]
     Dosage: START DATE:BEFORE STUDY START
  6. SIMVASTATIN [Concomitant]
     Dosage: START DATE:BEFORE STUDY START
  7. DEXAMETHASONE [Concomitant]
     Dates: start: 20111107
  8. ZOFRAN [Concomitant]
     Dates: start: 20110928
  9. PASPERTIN [Concomitant]
     Dosage: ROUTE: PERORAL
     Route: 048
     Dates: start: 20111108
  10. DOCETAXEL [Suspect]
     Indication: METASTATIC GASTRIC CANCER
     Dosage: 2-WEEKLY DOSE:50 MILLIGRAM(S)/MILLILITRE
     Route: 042
     Dates: start: 20111108, end: 20111108
  11. MEXALEN [Concomitant]
     Dosage: START DATE:BEFORE STUDY START
  12. MONOKET [Concomitant]
     Dosage: START DATE:BEFORE STUDY START
  13. ENTEROBENE [Concomitant]
     Dates: start: 20110804

REACTIONS (2)
  - FEBRILE NEUTROPENIA [None]
  - CHRONIC OBSTRUCTIVE PULMONARY DISEASE [None]
